FAERS Safety Report 17995197 (Version 1)
Quarter: 2020Q3

REPORT INFORMATION
  Report Type: Spontaneous
  Country: US (occurrence: US)
  Receive Date: 20200708
  Receipt Date: 20200708
  Transmission Date: 20201103
  Serious: Yes (Other)
  Sender: FDA-Public Use
  Company Number: US-PACIRA-202000287

PATIENT

DRUGS (9)
  1. EXPAREL [Suspect]
     Active Substance: BUPIVACAINE
     Indication: SPINAL FUSION SURGERY
     Dosage: 20ML (266MG) DILUTED TO 120CC WITH NS; ALONG PARASPINAL MUSCULATURE AND SUBCUTANEOUS TISSUE
  2. NORMAL SALINE [Concomitant]
     Active Substance: SODIUM CHLORIDE
     Indication: SPINAL FUSION SURGERY
     Dosage: 120 CC WITH 20 ML (266MG) OF EXPAREL; ALONG PARASPINAL MUSCULATURE AND SUBCUTANEOUS TISSUE
  3. ACETAMINOPHEN. [Concomitant]
     Active Substance: ACETAMINOPHEN
     Indication: PROCEDURAL PAIN
     Dosage: 650 MG Q4 HOUR
     Route: 048
  4. OXYCODONE [Concomitant]
     Active Substance: OXYCODONE
     Indication: PROCEDURAL PAIN
     Dosage: 5MG; 1 TO 2 TABLETS Q4 HOUR
     Route: 048
  5. DILAUDID [Concomitant]
     Active Substance: HYDROMORPHONE HYDROCHLORIDE
     Indication: PROCEDURAL PAIN
     Dosage: 0.2MG Q8MIN WITH ADD^L 0.4 MG Q1H AS NEEDED FOR BREAKTHROUGH PAIN VIA PATIENT CONTROLLED ANESTHESIA
     Route: 040
  6. OXYCONTIN [Concomitant]
     Active Substance: OXYCODONE HYDROCHLORIDE
     Indication: PROCEDURAL PAIN
     Dosage: 10MG BID PER NONNARCOTIC NA?VE INDIVIDUALS
     Route: 048
  7. FLEXERIL [Concomitant]
     Active Substance: CYCLOBENZAPRINE HYDROCHLORIDE
     Indication: PROCEDURAL PAIN
     Dosage: 5MG Q8HOUR
     Route: 048
  8. VALIUM [Concomitant]
     Active Substance: DIAZEPAM
     Indication: PROCEDURAL PAIN
     Dosage: 5MG Q8HOUR
     Route: 048
  9. BUPIVACAINE WITH EPINEPHERINE [Concomitant]
     Indication: SPINAL FUSION SURGERY
     Dosage: 30 ML (5MG/ML), PRIOR TO INCISION

REACTIONS (7)
  - Postoperative respiratory failure [Unknown]
  - Wound dehiscence [Unknown]
  - Postoperative wound infection [Unknown]
  - Postoperative ileus [Unknown]
  - Urinary tract infection [Unknown]
  - Nervous system disorder [Unknown]
  - Urinary retention postoperative [Unknown]
